FAERS Safety Report 9669546 (Version 2)
Quarter: 2014Q4

REPORT INFORMATION
  Report Type: Spontaneous
  Country: SE (occurrence: SE)
  Receive Date: 20131105
  Receipt Date: 20141212
  Transmission Date: 20150529
  Serious: Yes (Disabling)
  Sender: FDA-Public Use
  Company Number: SE-TEVA-439362ISR

PATIENT
  Sex: Male

DRUGS (1)
  1. SIMVASTATIN TEVA [Suspect]
     Active Substance: SIMVASTATIN
     Indication: BLOOD CHOLESTEROL
     Dosage: 40 MILLIGRAM DAILY;
     Route: 048
     Dates: start: 20050901

REACTIONS (5)
  - Erectile dysfunction [Unknown]
  - Memory impairment [Unknown]
  - Fatigue [Unknown]
  - Balance disorder [Unknown]
  - Muscle spasms [Unknown]

NARRATIVE: CASE EVENT DATE: 2010
